FAERS Safety Report 9058234 (Version 1)
Quarter: 2013Q1

REPORT INFORMATION
  Report Type: Spontaneous
  Country: US (occurrence: US)
  Receive Date: 20130211
  Receipt Date: 20130211
  Transmission Date: 20140127
  Serious: No
  Sender: FDA-Public Use
  Company Number: US-BIOGENIDEC-2013BI005556

PATIENT
  Age: 61 None
  Sex: Female

DRUGS (1)
  1. AVONEX [Suspect]
     Indication: MULTIPLE SCLEROSIS
     Route: 030
     Dates: start: 20040524

REACTIONS (3)
  - Venous injury [Recovered/Resolved]
  - Haemorrhage [Recovered/Resolved]
  - Injection site haemorrhage [Unknown]
